FAERS Safety Report 9521365 (Version 1)
Quarter: 2013Q1

REPORT INFORMATION
  Report Type: Spontaneous
  Country: US (occurrence: None)
  Receive Date: 20130305
  Receipt Date: 20130305
  Transmission Date: 20140127
  Serious: Yes (Life-Threatening, Hospitalization)
  Sender: FDA-Public Use
  Company Number: 163-21880-12072087

PATIENT
  Age: 77 Year
  Sex: Female

DRUGS (7)
  1. REVLIMID (LENALIDOMIDE) (CAPSULES) [Suspect]
     Indication: PLASMA CELL MYELOMA
     Dosage: 10 MG, 21 IN 28 D, PO
     Route: 048
     Dates: start: 201201, end: 20120727
  2. FLUVIRIN (INFLUENZA VIRUS VACCINE POLUVALENT_ [Concomitant]
  3. ACYCLOVIR (ACICLOVIR) (ACICLOVIR) [Concomitant]
  4. DEXAMETHASONE (DEXAMETHASONE) [Concomitant]
  5. VITAMINS [Concomitant]
  6. MORPHINE SULFATE (MORPHINE SULFATE) INJECTION [Concomitant]
  7. HYDROCODONE/APAP (VICODIN) [Concomitant]

REACTIONS (1)
  - Deep vein thrombosis [None]
